FAERS Safety Report 8247057-8 (Version None)
Quarter: 2012Q1

REPORT INFORMATION
  Report Type: 
  Country: None (occurrence: None)
  Receive Date: 20120329
  Receipt Date: 20120329
  Transmission Date: 20120608
  Serious: Yes (Life-Threatening)
  Sender: FDA-Public Use
  Company Number: None

PATIENT
  Age: 90 Year
  Sex: Female
  Weight: 60.3 kg

DRUGS (1)
  1. PRADAXA [Suspect]
     Indication: ATRIAL FIBRILLATION
     Dosage: 150 MG BID PO
     Route: 048

REACTIONS (4)
  - ASTHENIA [None]
  - COAGULOPATHY [None]
  - UPPER GASTROINTESTINAL HAEMORRHAGE [None]
  - HAEMORRHAGIC ANAEMIA [None]
